FAERS Safety Report 4293099-7 (Version None)
Quarter: 2004Q1

REPORT INFORMATION
  Report Type: 
  Country: None (occurrence: None)
  Receive Date: 20040212
  Receipt Date: 20021210
  Transmission Date: 20041129
  Serious: No
  Sender: FDA-Public Use
  Company Number: US-GLAXOSMITHKLINE-A0389205A

PATIENT
  Sex: Male

DRUGS (2)
  1. PAXIL [Suspect]
     Route: 048
     Dates: end: 20030423
  2. CIMETIDINE HCL [Concomitant]

REACTIONS (5)
  - DIZZINESS [None]
  - GYNAECOMASTIA [None]
  - HYPERHIDROSIS [None]
  - NAUSEA [None]
  - TREMOR [None]
